FAERS Safety Report 14822060 (Version 1)
Quarter: 2018Q2

REPORT INFORMATION
  Report Type: Spontaneous
  Country: JP (occurrence: JP)
  Receive Date: 20180427
  Receipt Date: 20180427
  Transmission Date: 20180711
  Serious: Yes (Hospitalization, Other)
  Sender: FDA-Public Use
  Company Number: JP-GLAXOSMITHKLINE-JP2018JPN070186

PATIENT
  Age: 4 Decade
  Sex: Male

DRUGS (3)
  1. KALETRA [Suspect]
     Active Substance: LOPINAVIR\RITONAVIR
     Indication: HIV INFECTION
     Dosage: UNK
     Route: 048
  2. ZERIT [Concomitant]
     Active Substance: STAVUDINE
     Indication: HIV INFECTION
     Dosage: UNK
  3. EPIVIR [Suspect]
     Active Substance: LAMIVUDINE
     Indication: HIV INFECTION
     Dosage: UNK
     Route: 048

REACTIONS (12)
  - Flank pain [Unknown]
  - Thrombocytopenia [Unknown]
  - Osteolysis [Unknown]
  - Chronic hepatitis C [Unknown]
  - Hepatic function abnormal [Unknown]
  - Splenomegaly [Unknown]
  - Hepatic cirrhosis [Unknown]
  - Varices oesophageal [Unknown]
  - Hypocoagulable state [Unknown]
  - Haemophilic pseudotumour [Not Recovered/Not Resolved]
  - Muscle haemorrhage [Unknown]
  - Hypersplenism [Unknown]
